FAERS Safety Report 24335634 (Version 4)
Quarter: 2024Q4

REPORT INFORMATION
  Report Type: Spontaneous
  Country: US (occurrence: US)
  Receive Date: 20240919
  Receipt Date: 20241111
  Transmission Date: 20250115
  Serious: No
  Sender: ROCHE
  Company Number: US-ROCHE-10000083100

PATIENT
  Sex: Female

DRUGS (2)
  1. ACTEMRA [Suspect]
     Active Substance: TOCILIZUMAB
     Indication: Juvenile idiopathic arthritis
     Dosage: STRENGTH-400MG/20ML
     Route: 042
     Dates: start: 202204
  2. TYLENOL [Concomitant]
     Active Substance: ACETAMINOPHEN

REACTIONS (6)
  - Headache [Unknown]
  - Fatigue [Unknown]
  - Mouth ulceration [Unknown]
  - Condition aggravated [Unknown]
  - Uveitis [Unknown]
  - Stomatitis [Unknown]
